FAERS Safety Report 19967788 (Version 1)
Quarter: 2021Q4

REPORT INFORMATION
  Report Type: Spontaneous
  Country: US (occurrence: US)
  Receive Date: 20211015
  Receipt Date: 20211015
  Transmission Date: 20220304
  Serious: No
  Sender: FDA-Public Use
  Company Number: None

PATIENT
  Age: 50 Year
  Sex: Female
  Weight: 63.5 kg

DRUGS (2)
  1. ETESEVIMAB [Suspect]
     Active Substance: ETESEVIMAB
  2. BAMLANIVIMAB [Suspect]
     Active Substance: BAMLANIVIMAB

REACTIONS (2)
  - Flushing [None]
  - Presyncope [None]

NARRATIVE: CASE EVENT DATE: 20211004
